FAERS Safety Report 21337823 (Version 3)
Quarter: 2025Q1

REPORT INFORMATION
  Report Type: Spontaneous
  Country: US (occurrence: US)
  Receive Date: 20220915
  Receipt Date: 20250213
  Transmission Date: 20250408
  Serious: No
  Sender: ELI LILLY AND COMPANY
  Company Number: US-ELI_LILLY_AND_COMPANY-US202209005104

PATIENT
  Age: 59 Year
  Sex: Female

DRUGS (2)
  1. VERZENIO [Suspect]
     Active Substance: ABEMACICLIB
     Indication: Breast cancer female
     Dosage: 150 MG, BID
     Route: 048
  2. VERZENIO [Suspect]
     Active Substance: ABEMACICLIB
     Dosage: 100 MG, BID
     Route: 048

REACTIONS (15)
  - Nail ridging [Unknown]
  - Onychoclasis [Unknown]
  - Dyspepsia [Unknown]
  - Pruritus [Unknown]
  - Madarosis [Unknown]
  - Scab [Unknown]
  - Impaired healing [Unknown]
  - Arthralgia [Recovered/Resolved]
  - Oral candidiasis [Unknown]
  - Stomatitis [Unknown]
  - Alopecia [Unknown]
  - White blood cell count decreased [Unknown]
  - Nausea [Unknown]
  - Diarrhoea [Unknown]
  - Fatigue [Unknown]

NARRATIVE: CASE EVENT DATE: 20220701
